FAERS Safety Report 21562322 (Version 1)
Quarter: 2022Q4

REPORT INFORMATION
  Report Type: Spontaneous
  Country: AT (occurrence: AT)
  Receive Date: 20221107
  Receipt Date: 20221107
  Transmission Date: 20230113
  Serious: Yes (Hospitalization, Other)
  Sender: FDA-Public Use
  Company Number: AT-ALLERGAN-2236412US

PATIENT
  Sex: Female

DRUGS (8)
  1. MEMANTINE [Suspect]
     Active Substance: MEMANTINE
     Indication: Dementia
     Dosage: 20 MG, QD
     Dates: end: 202209
  2. ARICEPT [Concomitant]
     Active Substance: DONEPEZIL HYDROCHLORIDE
  3. SEROQUEL [Concomitant]
     Active Substance: QUETIAPINE FUMARATE
     Dosage: 1 DF, QD
  4. TRAZODONE HYDROCHLORIDE [Concomitant]
     Active Substance: TRAZODONE HYDROCHLORIDE
  5. DULOXETINE [Concomitant]
     Active Substance: DULOXETINE
  6. PREGABALIN [Concomitant]
     Active Substance: PREGABALIN
     Dosage: 50 MG, BID
  7. BISOPROLOL FUMARATE [Concomitant]
     Active Substance: BISOPROLOL FUMARATE
     Dosage: 2.5 MG, BID
     Dates: start: 2022
  8. LASIX [Concomitant]
     Active Substance: FUROSEMIDE
     Dosage: UNK
     Dates: start: 2022

REACTIONS (6)
  - Pneumonia [Unknown]
  - Urinary tract infection [Unknown]
  - Adverse event [Unknown]
  - Electrocardiogram QT prolonged [Unknown]
  - Bundle branch block right [Unknown]
  - Bradycardia [Unknown]

NARRATIVE: CASE EVENT DATE: 20220901
